FAERS Safety Report 13190465 (Version 1)
Quarter: 2017Q1

REPORT INFORMATION
  Report Type: Spontaneous
  Country: TR (occurrence: TR)
  Receive Date: 20170206
  Receipt Date: 20170206
  Transmission Date: 20170428
  Serious: Yes (Other)
  Sender: FDA-Public Use
  Company Number: TR-009507513-1701TUR013817

PATIENT
  Age: 72 Year
  Sex: Male
  Weight: 62 kg

DRUGS (1)
  1. TEMODAL [Suspect]
     Active Substance: TEMOZOLOMIDE
     Indication: NASAL CAVITY CANCER
     Dosage: 5 DAYS, 300 MG, 23 DAYS BREAK
     Route: 048
     Dates: start: 20160606

REACTIONS (2)
  - Blindness [Unknown]
  - Product use issue [Unknown]

NARRATIVE: CASE EVENT DATE: 20160606
